FAERS Safety Report 8551623-X (Version None)
Quarter: 2012Q3

REPORT INFORMATION
  Report Type: 
  Country: None (occurrence: None)
  Receive Date: 20120730
  Receipt Date: 20120720
  Transmission Date: 20120928
  Serious: Yes (Other)
  Sender: FDA-Public Use
  Company Number: US-ASTRAZENECA-2012SE41277

PATIENT
  Age: 74 Year
  Sex: Female
  Weight: 100.2 kg

DRUGS (1)
  1. NEXIUM [Suspect]
     Indication: GASTROOESOPHAGEAL REFLUX DISEASE
     Route: 048
     Dates: start: 20110101

REACTIONS (5)
  - CONCUSSION [None]
  - PRESYNCOPE [None]
  - FALL [None]
  - LOSS OF CONSCIOUSNESS [None]
  - BACK PAIN [None]
